FAERS Safety Report 6299943-6 (Version None)
Quarter: 2009Q3

REPORT INFORMATION
  Report Type: 
  Country: None (occurrence: None)
  Receive Date: 20090806
  Receipt Date: 20090731
  Transmission Date: 20100115
  Serious: No
  Sender: FDA-Public Use
  Company Number: US-B.I. PHARMACEUTICALS,INC./RIDGEFIELD-2009-BP-08307BP

PATIENT
  Age: 69 Year
  Sex: Male

DRUGS (12)
  1. FLOMAX [Suspect]
     Indication: PROSTATOMEGALY
     Dosage: 0.4 MG
     Route: 048
  2. FLOMAX [Suspect]
     Indication: MICTURITION DISORDER
  3. AVODART [Concomitant]
     Indication: PROSTATOMEGALY
     Dates: start: 20060101
  4. QUINAPRIL [Concomitant]
     Indication: HYPERTENSION
  5. DIURETIC [Concomitant]
     Indication: FLUID RETENTION
  6. ADVAIR HFA [Concomitant]
  7. METOPROLOL SUCCINATE [Concomitant]
  8. ALPRAZOLAM [Concomitant]
  9. ZETIA [Concomitant]
  10. FUROSEMIDE [Concomitant]
  11. POTASSIUM CHLORIDE [Concomitant]
  12. TAZTIA XT [Concomitant]

REACTIONS (5)
  - DYSURIA [None]
  - EJACULATION FAILURE [None]
  - ERECTILE DYSFUNCTION [None]
  - LOSS OF CONSCIOUSNESS [None]
  - RASH [None]
